FAERS Safety Report 20373887 (Version 1)
Quarter: 2022Q1

REPORT INFORMATION
  Report Type: Report from Study
  Country: US (occurrence: None)
  Receive Date: 20220125
  Receipt Date: 20220125
  Transmission Date: 20220423
  Serious: Yes (Hospitalization, Other)
  Sender: FDA-Public Use
  Company Number: US-ROCHE-2935088

PATIENT
  Age: 67 Year
  Sex: Female
  Weight: 60.6 kg

DRUGS (4)
  1. ATEZOLIZUMAB [Suspect]
     Active Substance: ATEZOLIZUMAB
     Indication: Small cell lung cancer
     Dosage: ON 09/JUL/2020, SHE RECEIVED THE MOST RECENT DOSE OF ATEZOLIZUMAB PRIOR TO ONSET OF ADVERSE EVENT (A
     Route: 042
     Dates: start: 20200525
  2. CISPLATIN [Suspect]
     Active Substance: CISPLATIN
     Indication: Small cell lung cancer
     Route: 065
     Dates: start: 20200430
  3. ETOPOSIDE [Suspect]
     Active Substance: ETOPOSIDE
     Indication: Small cell lung cancer
     Dosage: ON DAYS 1-3
     Route: 042
     Dates: start: 20200430
  4. ZOSYN [Concomitant]
     Active Substance: PIPERACILLIN SODIUM\TAZOBACTAM SODIUM

REACTIONS (4)
  - Febrile neutropenia [Recovered/Resolved]
  - White blood cell count decreased [Unknown]
  - Nausea [Unknown]
  - Diverticulitis [Unknown]

NARRATIVE: CASE EVENT DATE: 20200725
